FAERS Safety Report 8716993 (Version 3)
Quarter: 2013Q1

REPORT INFORMATION
  Report Type: Spontaneous
  Country: US (occurrence: US)
  Receive Date: 20120810
  Receipt Date: 20130117
  Transmission Date: 20140127
  Serious: Yes (Other)
  Sender: FDA-Public Use
  Company Number: US-ELI_LILLY_AND_COMPANY-US201207009232

PATIENT
  Age: 73 Year
  Sex: Female

DRUGS (9)
  1. CYMBALTA [Suspect]
     Indication: NEUROPATHY PERIPHERAL
     Dosage: 30 MG, QD
     Route: 048
     Dates: start: 2010
  2. CYMBALTA [Suspect]
     Dosage: 60 MG, QD
     Route: 048
  3. CYMBALTA [Suspect]
     Dosage: 90 MG, QD
     Route: 048
     Dates: start: 20100629
  4. LIPITOR [Concomitant]
  5. MICRO K [Concomitant]
  6. BYSTOLIC [Concomitant]
     Dosage: 1 DF, QD
  7. DYAZIDE [Concomitant]
  8. XANAX [Concomitant]
  9. HYDROCODONE [Concomitant]

REACTIONS (8)
  - Rotator cuff syndrome [Unknown]
  - Pain [Unknown]
  - Off label use [Not Recovered/Not Resolved]
  - Head injury [Unknown]
  - Ataxia [Unknown]
  - Confusional state [Unknown]
  - Fall [Unknown]
  - Headache [Unknown]
